FAERS Safety Report 24105051 (Version 1)
Quarter: 2024Q3

REPORT INFORMATION
  Report Type: Spontaneous
  Country: NL (occurrence: NL)
  Receive Date: 20240717
  Receipt Date: 20240717
  Transmission Date: 20241017
  Serious: Yes (Hospitalization, Disabling)
  Sender: PFIZER
  Company Number: None

PATIENT
  Age: 60 Year
  Sex: Female
  Weight: 85 kg

DRUGS (9)
  1. TUCATINIB [Suspect]
     Active Substance: TUCATINIB
     Indication: Hormone receptor positive breast cancer
     Dosage: 150 MG, 2X/DAY
     Dates: start: 20240111
  2. CAPECITABINE [Concomitant]
     Active Substance: CAPECITABINE
     Dosage: 500 MG
  3. KANJINTI [Concomitant]
     Active Substance: TRASTUZUMAB-ANNS
     Dosage: 420 MG
  4. LYRICA [Concomitant]
     Active Substance: PREGABALIN
     Dosage: 150 MG
  5. DOLOPHINE [Concomitant]
     Active Substance: METHADONE HYDROCHLORIDE
     Dosage: 10 MG
  6. NAPROXEN [Concomitant]
     Active Substance: NAPROXEN
     Dosage: 25 MG
  7. OXYCONTIN [Concomitant]
     Active Substance: OXYCODONE HYDROCHLORIDE
     Dosage: 10 MG
  8. OXYCODONE HYDROCHLORIDE [Concomitant]
     Active Substance: OXYCODONE HYDROCHLORIDE
     Dosage: 5 MG
  9. ACETAMINOPHEN [Concomitant]
     Active Substance: ACETAMINOPHEN
     Dosage: 1000 MG

REACTIONS (1)
  - Oedema [Not Recovered/Not Resolved]
